FAERS Safety Report 4389598-X (Version None)
Quarter: 2004Q3

REPORT INFORMATION
  Report Type: 
  Country: None (occurrence: None)
  Receive Date: 20040702
  Receipt Date: 20030113
  Transmission Date: 20050211
  Serious: Yes (Hospitalization, Other)
  Sender: FDA-Public Use
  Company Number: US-MERCK-0301USA01110

PATIENT
  Age: 44 Year
  Sex: Male
  Weight: 102 kg

DRUGS (7)
  1. VICODIN [Concomitant]
     Route: 065
     Dates: start: 20000126
  2. CLONIDINE [Concomitant]
     Indication: INFLAMMATION
     Route: 065
  3. CLONIDINE [Concomitant]
     Indication: PAIN
     Route: 065
  4. SKELAXIN [Concomitant]
     Route: 065
     Dates: start: 20000126
  5. VIOXX [Suspect]
     Indication: PAIN
     Route: 048
     Dates: start: 20000126, end: 20011201
  6. VIOXX [Suspect]
     Indication: INTERVERTEBRAL DISC PROTRUSION
     Route: 048
     Dates: start: 20000126, end: 20011201
  7. DESYREL [Concomitant]
     Route: 065
     Dates: start: 20000126

REACTIONS (49)
  - ANHEDONIA [None]
  - ANXIETY [None]
  - ASTHENIA [None]
  - BACK INJURY [None]
  - BACK PAIN [None]
  - BALANCE DISORDER [None]
  - BLOOD PRESSURE INCREASED [None]
  - CEREBROVASCULAR ACCIDENT [None]
  - CHEST PAIN [None]
  - CHRONIC FATIGUE SYNDROME [None]
  - DEPRESSION [None]
  - DISORDER OF GLOBE [None]
  - DIZZINESS [None]
  - DYSPEPSIA [None]
  - DYSPNOEA [None]
  - ELECTROCARDIOGRAM T WAVE INVERSION [None]
  - EMOTIONAL DISORDER [None]
  - EMOTIONAL DISTRESS [None]
  - GAIT DISTURBANCE [None]
  - GASTROOESOPHAGEAL REFLUX DISEASE [None]
  - GAZE PALSY [None]
  - HEADACHE [None]
  - HERNIA [None]
  - HYPERTENSION [None]
  - HYPERTHYROIDISM [None]
  - INSOMNIA [None]
  - INTERVERTEBRAL DISC PROTRUSION [None]
  - LACUNAR INFARCTION [None]
  - MENTAL DISORDER [None]
  - MUSCLE CONTRACTURE [None]
  - MUSCLE SPASMS [None]
  - MUSCLE STRAIN [None]
  - MUSCULOSKELETAL STIFFNESS [None]
  - NECK PAIN [None]
  - NEURITIS [None]
  - OEDEMA PERIPHERAL [None]
  - PAIN IN EXTREMITY [None]
  - PARAESTHESIA [None]
  - PERIPHERAL VASCULAR DISORDER [None]
  - RADICULOPATHY [None]
  - RENAL FAILURE [None]
  - ROAD TRAFFIC ACCIDENT [None]
  - SPINAL OSTEOARTHRITIS [None]
  - STRESS SYMPTOMS [None]
  - TRANSIENT ISCHAEMIC ATTACK [None]
  - TREATMENT NONCOMPLIANCE [None]
  - VENTRICULAR HYPERTROPHY [None]
  - VERTIGO POSITIONAL [None]
  - VOMITING [None]
